FAERS Safety Report 5162683-0 (Version None)
Quarter: 2006Q4

REPORT INFORMATION
  Report Type: 
  Country: None (occurrence: None)
  Receive Date: 20061121
  Receipt Date: 20061110
  Transmission Date: 20070319
  Serious: Yes (Other)
  Sender: FDA-Public Use
  Company Number: 2006SP006208

PATIENT
  Age: 58 Year
  Sex: Female

DRUGS (2)
  1. PEG-INTRON [Suspect]
     Indication: HEPATITIS C
     Dosage: 80 MCG; UNKNOWN
  2. REBETOL [Suspect]
     Indication: HEPATITIS C
     Dosage: 400 MG; BID; PO
     Route: 048

REACTIONS (5)
  - ALOPECIA [None]
  - HERPES ZOSTER [None]
  - MOBILITY DECREASED [None]
  - ORAL CANDIDIASIS [None]
  - RED BLOOD CELL ABNORMALITY [None]
